FAERS Safety Report 11815122 (Version 1)
Quarter: 2015Q4

REPORT INFORMATION
  Report Type: Spontaneous
  Country: US (occurrence: US)
  Receive Date: 20151209
  Receipt Date: 20151209
  Transmission Date: 20160305
  Serious: Yes (Other)
  Sender: FDA-Public Use
  Company Number: US-SA-2015SA170928

PATIENT
  Age: 59 Year
  Sex: Male

DRUGS (6)
  1. TOUJEO [Suspect]
     Active Substance: INSULIN GLARGINE
     Indication: TYPE 2 DIABETES MELLITUS
     Dosage: TAKEN FROM 2 WEEKS DOSE:65 UNIT(S)
     Route: 065
     Dates: start: 201510, end: 201510
  2. TOUJEO [Suspect]
     Active Substance: INSULIN GLARGINE
     Indication: TYPE 2 DIABETES MELLITUS
     Dosage: DOSE:43 UNIT(S)
     Route: 065
     Dates: start: 20151019, end: 20151019
  3. SOLOSTAR [Concomitant]
     Active Substance: DEVICE
     Dates: start: 20151019, end: 20151019
  4. SOLOSTAR [Concomitant]
     Active Substance: DEVICE
     Dates: start: 201510, end: 201510
  5. SOLOSTAR [Concomitant]
     Active Substance: DEVICE
     Dates: start: 20151019
  6. TOUJEO [Suspect]
     Active Substance: INSULIN GLARGINE
     Indication: TYPE 2 DIABETES MELLITUS
     Dosage: DOSE:22 UNIT(S)
     Route: 065
     Dates: start: 20151019

REACTIONS (4)
  - Hyperhidrosis [Unknown]
  - Blood glucose decreased [Unknown]
  - Tremor [Unknown]
  - Disorientation [Unknown]

NARRATIVE: CASE EVENT DATE: 201510
